FAERS Safety Report 5682796-4 (Version None)
Quarter: 2008Q1

REPORT INFORMATION
  Report Type: 
  Country: None (occurrence: None)
  Receive Date: 20080327
  Receipt Date: 20080321
  Transmission Date: 20080703
  Serious: Yes (Life-Threatening, Hospitalization)
  Sender: FDA-Public Use
  Company Number: IT-ASTRAZENECA-2008SE01555

PATIENT
  Age: 45 Year
  Sex: Female

DRUGS (4)
  1. ATENOLOL [Suspect]
  2. NIFEDIPINE [Suspect]
  3. COUMADIN [Concomitant]
  4. BENZODIAZEPINES [Concomitant]

REACTIONS (2)
  - MULTI-ORGAN FAILURE [None]
  - OVERDOSE [None]
